FAERS Safety Report 7539436-9 (Version None)
Quarter: 2011Q2

REPORT INFORMATION
  Report Type: 
  Country: None (occurrence: None)
  Receive Date: 20110610
  Receipt Date: 20110607
  Transmission Date: 20111010
  Serious: Yes (Hospitalization, Other)
  Sender: FDA-Public Use
  Company Number: US-PFIZER INC-HQWYE002024FEB06

PATIENT
  Sex: Female
  Weight: 58 kg

DRUGS (3)
  1. PREMPRO [Suspect]
     Indication: HORMONE REPLACEMENT THERAPY
     Dosage: 0.625/2.5
     Route: 048
     Dates: start: 19970701, end: 20020601
  2. CALCIUM [Concomitant]
     Indication: BONE DENSITOMETRY
     Dosage: UNK
     Dates: start: 19980101
  3. PREMARIN [Suspect]
     Indication: HORMONE REPLACEMENT THERAPY
     Dosage: UNK
     Dates: start: 19980101, end: 20010101

REACTIONS (1)
  - BREAST CANCER [None]
